FAERS Safety Report 12346496 (Version 1)
Quarter: 2016Q2

REPORT INFORMATION
  Report Type: Spontaneous
  Country: SE (occurrence: SE)
  Receive Date: 20160426
  Receipt Date: 20160426
  Transmission Date: 20160815
  Serious: Yes (Hospitalization)
  Sender: FDA-Public Use
  Company Number: SE-MALLINCKRODT-T201601354

PATIENT
  Age: 71 Year
  Sex: Female

DRUGS (1)
  1. OPTIRAY 350 [Suspect]
     Active Substance: IOVERSOL
     Indication: X-RAY WITH CONTRAST
     Dosage: 90 ML, UNK
     Route: 042
     Dates: start: 20160102, end: 20160102

REACTIONS (4)
  - Blister [Unknown]
  - Compartment syndrome [Unknown]
  - Skin wound [Unknown]
  - Injection site extravasation [Unknown]

NARRATIVE: CASE EVENT DATE: 20160102
